FAERS Safety Report 7752359-5 (Version None)
Quarter: 2011Q3

REPORT INFORMATION
  Report Type: 
  Country: None (occurrence: None)
  Receive Date: 20110915
  Receipt Date: 20110818
  Transmission Date: 20111222
  Serious: Yes (Hospitalization, Other)
  Sender: FDA-Public Use
  Company Number: PHHY2011PK73970

PATIENT
  Sex: Male
  Weight: 77 kg

DRUGS (5)
  1. SPIRONOLACTONE [Concomitant]
     Dosage: 40 MG, QD
  2. AMLODIPINE [Concomitant]
     Dosage: 5 MG, QD
  3. ALISKIREN [Suspect]
     Dosage: 150 MG, QD
     Dates: start: 20100818
  4. PRAZOSIN HCL [Concomitant]
     Dosage: 2 MG, QD
  5. CO-LISINOPRIL [Concomitant]
     Dosage: 10/12.5 MG QD

REACTIONS (5)
  - BLOOD CREATININE INCREASED [None]
  - BLOOD POTASSIUM INCREASED [None]
  - BLOOD GLUCOSE INCREASED [None]
  - GLYCOSYLATED HAEMOGLOBIN INCREASED [None]
  - BLOOD UREA INCREASED [None]
